FAERS Safety Report 12658058 (Version 1)
Quarter: 2016Q3

REPORT INFORMATION
  Report Type: Spontaneous
  Country: US (occurrence: US)
  Receive Date: 20160817
  Receipt Date: 20160817
  Transmission Date: 20161109
  Serious: Yes (Hospitalization, Other)
  Sender: FDA-Public Use
  Company Number: US-AMGEN-USASP2016104848

PATIENT
  Age: 35 Year
  Sex: Male
  Weight: 74.83 kg

DRUGS (1)
  1. PROCRIT [Suspect]
     Active Substance: ERYTHROPOIETIN
     Indication: APLASTIC ANAEMIA
     Dosage: UNK
     Route: 058
     Dates: start: 2003, end: 2011

REACTIONS (9)
  - Cerebral haemorrhage [Unknown]
  - Loss of consciousness [Unknown]
  - Brain death [Unknown]
  - Diplopia [Unknown]
  - Off label use [Recovered/Resolved]
  - Weight decreased [Not Recovered/Not Resolved]
  - Crohn^s disease [Unknown]
  - Aplastic anaemia [Unknown]
  - Dysgeusia [Unknown]

NARRATIVE: CASE EVENT DATE: 2003
